FAERS Safety Report 12335938 (Version 1)
Quarter: 2016Q2

REPORT INFORMATION
  Report Type: Spontaneous
  Country: US (occurrence: None)
  Receive Date: 20160504
  Receipt Date: 20160504
  Transmission Date: 20160815
  Serious: No
  Sender: FDA-Public Use
  Company Number: None

PATIENT

DRUGS (6)
  1. LANTUS [Suspect]
     Active Substance: INSULIN GLARGINE
  2. LISINOPRIL. [Concomitant]
     Active Substance: LISINOPRIL
  3. AMARYL [Concomitant]
     Active Substance: GLIMEPIRIDE
  4. METFORMIN [Suspect]
     Active Substance: METFORMIN HYDROCHLORIDE
  5. ACTOS [Concomitant]
     Active Substance: PIOGLITAZONE HYDROCHLORIDE
  6. LOSARTAN. [Suspect]
     Active Substance: LOSARTAN

REACTIONS (9)
  - Fall [None]
  - Impaired driving ability [None]
  - Hypoacusis [None]
  - Loss of consciousness [None]
  - Hypoglycaemia [None]
  - Anxiety [None]
  - Blood glucose increased [None]
  - Fluid retention [None]
  - Migraine [None]
